FAERS Safety Report 7472506-2 (Version None)
Quarter: 2011Q2

REPORT INFORMATION
  Report Type: 
  Country: None (occurrence: None)
  Receive Date: 20110511
  Receipt Date: 20110429
  Transmission Date: 20111010
  Serious: Yes (Death)
  Sender: FDA-Public Use
  Company Number: SA-SANOFI-AVENTIS-2011SA028650

PATIENT

DRUGS (6)
  1. CYCLOPHOSPHAMIDE [Suspect]
     Dosage: QD X 4 ON DAYS -5, -4, -3, AND -2
     Route: 065
  2. OFORTA [Suspect]
     Indication: STEM CELL TRANSPLANT
     Dosage: QD X 3 ON DAYS -9, -8, AND -7
     Route: 048
  3. OFORTA [Suspect]
     Dosage: QD X 3 ON DAYS -9, -8, AND -7
     Route: 048
  4. CYCLOSPORINE [Concomitant]
  5. CYCLOPHOSPHAMIDE [Suspect]
     Indication: STEM CELL TRANSPLANT
     Dosage: QD X 4 ON DAYS -5, -4, -3, AND -2
     Route: 065
  6. METHOTREXATE [Concomitant]

REACTIONS (1)
  - DEATH [None]
